FAERS Safety Report 15882754 (Version 1)
Quarter: 2019Q1

REPORT INFORMATION
  Report Type: Spontaneous
  Country: FR (occurrence: FR)
  Receive Date: 20190129
  Receipt Date: 20190129
  Transmission Date: 20190417
  Serious: Yes (Death, Hospitalization, Other)
  Sender: FDA-Public Use
  Company Number: FR-AUROBINDO-AUR-APL-2019-003225

PATIENT
  Age: 60 Year
  Sex: Female

DRUGS (1)
  1. CAPECITABINE FILM COATED TABLET [Suspect]
     Active Substance: CAPECITABINE
     Indication: HEPATIC CANCER
     Dosage: UNK
     Route: 048
     Dates: start: 201609

REACTIONS (8)
  - Leukopenia [Unknown]
  - Product use in unapproved indication [Fatal]
  - Throat irritation [Unknown]
  - Erythema [Unknown]
  - Aphthous ulcer [Unknown]
  - Off label use [Fatal]
  - Death [Fatal]
  - Dysphagia [Unknown]
